FAERS Safety Report 9003187 (Version 5)
Quarter: 2013Q2

REPORT INFORMATION
  Report Type: Report from Study
  Country: US (occurrence: US)
  Receive Date: 20130108
  Receipt Date: 20130507
  Transmission Date: 20140414
  Serious: Yes (Death, Life-Threatening, Hospitalization, Other)
  Sender: FDA-Public Use
  Company Number: US-ACTELION-A-NJ2012-77208

PATIENT
  Age: 65 Year
  Sex: Female

DRUGS (1)
  1. TRACLEER [Suspect]
     Indication: PULMONARY ARTERIAL HYPERTENSION
     Dosage: 125 MG, BID
     Route: 048
     Dates: start: 200810, end: 20130410

REACTIONS (11)
  - Cardiac failure acute [Fatal]
  - General physical health deterioration [Recovered/Resolved with Sequelae]
  - Multi-organ failure [Recovered/Resolved with Sequelae]
  - Renal disorder [Recovered/Resolved with Sequelae]
  - Renal failure [Unknown]
  - Aphasia [Unknown]
  - Aphonia [Unknown]
  - Cardiac failure [Recovered/Resolved with Sequelae]
  - Abasia [Recovered/Resolved with Sequelae]
  - Aphagia [Recovered/Resolved with Sequelae]
  - Local swelling [Unknown]
